FAERS Safety Report 7288287-1 (Version None)
Quarter: 2011Q1

REPORT INFORMATION
  Report Type: 
  Country: None (occurrence: None)
  Receive Date: 20110211
  Receipt Date: 20110203
  Transmission Date: 20110831
  Serious: Yes (Hospitalization)
  Sender: FDA-Public Use
  Company Number: CO-ROCHE-757354

PATIENT
  Sex: Male

DRUGS (1)
  1. XELODA [Suspect]
     Indication: GASTRIC CANCER
     Route: 048
     Dates: start: 20091209, end: 20110128

REACTIONS (3)
  - HEPATIC FAILURE [None]
  - JAUNDICE [None]
  - GASTROINTESTINAL HAEMORRHAGE [None]
